FAERS Safety Report 8867358 (Version 1)
Quarter: 2012Q4

REPORT INFORMATION
  Report Type: 
  Country: US (occurrence: US)
  Receive Date: 20121025
  Receipt Date: 20121025
  Transmission Date: 20130627
  Serious: No
  Sender: FDA-Public Use
  Company Number: US-AMGEN-USASP2012016334

PATIENT
  Sex: Female

DRUGS (8)
  1. ENBREL [Suspect]
     Indication: PRODUCT USED FOR UNKNOWN INDICATION
     Dosage: 50 mg, qwk
     Route: 058
  2. PREDNISONE [Concomitant]
     Dosage: 2.5 mg, UNK
  3. ALEVE [Concomitant]
     Dosage: 220 mg, UNK
  4. TYLENOL ARTHRITIS [Concomitant]
     Dosage: 650 mg, UNK
  5. MULTIVITAMIN                       /00097801/ [Concomitant]
     Dosage: UNK
  6. CALCIUM [Concomitant]
     Dosage: UNK
  7. AMINO ACID [Concomitant]
     Dosage: UNK
  8. 5-HTP                              /00439301/ [Concomitant]
     Dosage: 100 mg, UNK

REACTIONS (1)
  - Therapeutic response decreased [Unknown]
